FAERS Safety Report 8849285 (Version 2)
Quarter: 2012Q4

REPORT INFORMATION
  Report Type: 
  Country: US (occurrence: US)
  Receive Date: 20121019
  Receipt Date: 20121022
  Transmission Date: 20130627
  Serious: Yes (Hospitalization)
  Sender: FDA-Public Use
  Company Number: US-BAYER-2012-106229

PATIENT
  Age: 29 Year
  Sex: Female

DRUGS (3)
  1. YAZ [Suspect]
     Dosage: UNK
     Dates: start: 200711, end: 201011
  2. ADDERALL XR [Concomitant]
     Dosage: 20 mg, UNK
     Route: 048
     Dates: start: 20100519, end: 20100922
  3. AMPHETAMINE SALTS [Concomitant]
     Dosage: 20 mg, UNK
     Route: 048
     Dates: start: 20091215, end: 20101101

REACTIONS (2)
  - Pulmonary embolism [None]
  - Deep vein thrombosis [Recovered/Resolved]
